FAERS Safety Report 10510845 (Version 1)
Quarter: 2014Q4

REPORT INFORMATION
  Report Type: Spontaneous
  Country: SE (occurrence: SE)
  Receive Date: 20141010
  Receipt Date: 20141010
  Transmission Date: 20150528
  Serious: Yes (Other)
  Sender: FDA-Public Use
  Company Number: SE-JNJFOC-20140926400

PATIENT
  Age: 52 Year
  Sex: Male

DRUGS (1)
  1. LEUSTATIN [Suspect]
     Active Substance: CLADRIBINE
     Indication: HAIRY CELL LEUKAEMIA
     Route: 065
     Dates: end: 20130408

REACTIONS (1)
  - Nerve injury [Recovered/Resolved]

NARRATIVE: CASE EVENT DATE: 20130218
